FAERS Safety Report 5870750-9 (Version None)
Quarter: 2008Q3

REPORT INFORMATION
  Report Type: 
  Country: None (occurrence: None)
  Receive Date: 20080904
  Receipt Date: 20080714
  Transmission Date: 20090109
  Serious: Yes (Hospitalization)
  Sender: FDA-Public Use
  Company Number: US-PURDUE-USA_2008_0034518

PATIENT
  Sex: Male
  Weight: 58 kg

DRUGS (2)
  1. OXYCONTIN [Suspect]
     Indication: PAIN
     Dosage: 80 MG, TID
     Route: 048
     Dates: start: 20000101, end: 20070101
  2. TYLENOL W/ CODEINE NO. 4 [Concomitant]
     Indication: DRUG USE FOR UNKNOWN INDICATION
     Route: 065

REACTIONS (3)
  - ABNORMAL DREAMS [None]
  - CONFUSIONAL STATE [None]
  - LIFE SUPPORT [None]
